FAERS Safety Report 21190405 (Version 3)
Quarter: 2023Q2

REPORT INFORMATION
  Report Type: Report from Study
  Country: DE (occurrence: DE)
  Receive Date: 20220809
  Receipt Date: 20230531
  Transmission Date: 20230721
  Serious: Yes (Hospitalization, Other)
  Sender: FDA-Public Use
  Company Number: DE-MYLANLABS-2022M1084300

PATIENT
  Sex: Female

DRUGS (20)
  1. METHOTREXATE [Suspect]
     Active Substance: METHOTREXATE
     Indication: Rheumatoid arthritis
     Dosage: 10 MILLIGRAM
     Route: 065
     Dates: start: 20170920
  2. METHOTREXATE [Suspect]
     Active Substance: METHOTREXATE
     Indication: Spinal osteoarthritis
     Dosage: 10 MILLIGRAM
     Route: 065
     Dates: start: 20171114
  3. METHOTREXATE [Suspect]
     Active Substance: METHOTREXATE
     Indication: Psoriatic arthropathy
     Dosage: 7.5 MILLIGRAM
     Route: 065
     Dates: start: 20180213
  4. METHOTREXATE [Suspect]
     Active Substance: METHOTREXATE
     Dosage: 7.5 MILLIGRAM
     Route: 065
     Dates: start: 20180731
  5. METHOTREXATE [Suspect]
     Active Substance: METHOTREXATE
     Dosage: 5 MILLIGRAM
     Route: 065
     Dates: start: 20190808
  6. METHOTREXATE [Suspect]
     Active Substance: METHOTREXATE
     Dosage: 5 MILLIGRAM
     Route: 065
     Dates: start: 20200406
  7. METHOTREXATE [Suspect]
     Active Substance: METHOTREXATE
     Dosage: 5 MILLIGRAM
     Route: 065
     Dates: start: 20201007
  8. METHOTREXATE [Suspect]
     Active Substance: METHOTREXATE
     Dosage: 7.5 MILLIGRAM
     Route: 065
     Dates: start: 20210312
  9. METHOTREXATE [Suspect]
     Active Substance: METHOTREXATE
     Dosage: 7.5 MILLIGRAM
     Route: 065
     Dates: start: 20210913
  10. METHOTREXATE [Suspect]
     Active Substance: METHOTREXATE
     Dosage: 10 MILLIGRAM
     Route: 065
     Dates: start: 20220217
  11. HYDROXYCHLOROQUINE [Suspect]
     Active Substance: HYDROXYCHLOROQUINE
     Indication: Rheumatoid arthritis
     Dosage: 400 MILLIGRAM
     Route: 065
     Dates: start: 20180731
  12. HYDROXYCHLOROQUINE [Suspect]
     Active Substance: HYDROXYCHLOROQUINE
     Indication: Spinal osteoarthritis
     Dosage: 200 MILLIGRAM
     Route: 065
     Dates: start: 20190328
  13. HYDROXYCHLOROQUINE [Suspect]
     Active Substance: HYDROXYCHLOROQUINE
     Indication: Psoriatic arthropathy
     Dosage: 200 MILLIGRAM
     Route: 065
     Dates: start: 20190808
  14. HYDROXYCHLOROQUINE [Suspect]
     Active Substance: HYDROXYCHLOROQUINE
     Dosage: 200 MILLIGRAM
     Route: 065
     Dates: start: 20200406
  15. HYDROXYCHLOROQUINE [Suspect]
     Active Substance: HYDROXYCHLOROQUINE
     Dosage: 200 MILLIGRAM
     Route: 065
     Dates: start: 20201007
  16. HYDROXYCHLOROQUINE [Suspect]
     Active Substance: HYDROXYCHLOROQUINE
     Dosage: 200 MILLIGRAM
     Route: 065
     Dates: start: 20210312
  17. HYDROXYCHLOROQUINE [Suspect]
     Active Substance: HYDROXYCHLOROQUINE
     Dosage: 200 MILLIGRAM
     Route: 065
     Dates: start: 20210913
  18. HYDROXYCHLOROQUINE [Suspect]
     Active Substance: HYDROXYCHLOROQUINE
     Dosage: 200 MILLIGRAM
     Route: 065
     Dates: start: 20220217
  19. SULFASALAZINE [Suspect]
     Active Substance: SULFASALAZINE
     Indication: Rheumatoid arthritis
     Dosage: 500 MILLIGRAM
     Route: 065
     Dates: start: 20190808
  20. SULFASALAZINE [Suspect]
     Active Substance: SULFASALAZINE
     Dosage: 500 MILLIGRAM
     Route: 065
     Dates: start: 20200406

REACTIONS (14)
  - Rheumatoid arthritis [Recovered/Resolved]
  - COVID-19 [Recovered/Resolved]
  - Haematoma [Unknown]
  - Constipation [Not Recovered/Not Resolved]
  - Aphthous ulcer [Recovered/Resolved]
  - Skin mass [Unknown]
  - Abdominal discomfort [Not Recovered/Not Resolved]
  - Speech disorder [Unknown]
  - Palpitations [Not Recovered/Not Resolved]
  - Alopecia [Unknown]
  - Nasopharyngitis [Unknown]
  - Oral herpes [Recovered/Resolved]
  - Dyspepsia [Unknown]
  - Fatigue [Unknown]

NARRATIVE: CASE EVENT DATE: 20171015
